FAERS Safety Report 9995425 (Version 1)
Quarter: 2014Q1

REPORT INFORMATION
  Report Type: Spontaneous
  Country: US (occurrence: US)
  Receive Date: 20140311
  Receipt Date: 20140311
  Transmission Date: 20141002
  Serious: No
  Sender: FDA-Public Use
  Company Number: US-BAYER-2014-035401

PATIENT
  Sex: Female

DRUGS (1)
  1. ADEMPAS [Suspect]
     Dosage: TITRATED TO 2MG DOSE BY MOUTH

REACTIONS (1)
  - Flushing [None]
